FAERS Safety Report 7067302-4 (Version None)
Quarter: 2010Q4

REPORT INFORMATION
  Report Type: 
  Country: None (occurrence: None)
  Receive Date: 20101022
  Receipt Date: 20101022
  Transmission Date: 20110411
  Serious: No
  Sender: FDA-Public Use
  Company Number: None

PATIENT
  Age: 61 Year
  Sex: Female
  Weight: 62.5964 kg

DRUGS (1)
  1. TRAMADOL HCL [Suspect]
     Indication: PAIN
     Dosage: 1 TAB. EVERY 6 HOURS AS NEEDED   ONE TABLET
     Dates: start: 20101020, end: 20101020

REACTIONS (6)
  - DIZZINESS [None]
  - HYPERSENSITIVITY [None]
  - INSOMNIA [None]
  - NAUSEA [None]
  - PRURITUS [None]
  - UNEVALUABLE EVENT [None]
